FAERS Safety Report 12197237 (Version 2)
Quarter: 2016Q1

REPORT INFORMATION
  Report Type: Spontaneous
  Country: FR (occurrence: FR)
  Receive Date: 20160321
  Receipt Date: 20160328
  Transmission Date: 20160526
  Serious: Yes (Death, Life-Threatening, Hospitalization, Other)
  Sender: FDA-Public Use
  Company Number: FR-KADMON PHARMACEUTICALS, LLC-KAD201603-001024

PATIENT
  Age: 84 Year
  Sex: Male

DRUGS (10)
  1. EXVIERA [Suspect]
     Active Substance: DASABUVIR
     Indication: HEPATITIS C
     Dosage: TABLET
     Route: 048
     Dates: start: 20150921, end: 20151007
  2. KENZEN [Concomitant]
     Active Substance: CANDESARTAN
  3. UMULINE [Concomitant]
     Active Substance: INSULIN HUMAN
  4. PREVISCAN [Concomitant]
     Active Substance: FLUINDIONE
  5. CARDENSIEL [Concomitant]
     Active Substance: BISOPROLOL FUMARATE
  6. TEMESTA [Concomitant]
     Active Substance: LORAZEPAM
  7. HUMALOG [Concomitant]
     Active Substance: INSULIN LISPRO
  8. RIBAVIRIN. [Suspect]
     Active Substance: RIBAVIRIN
     Indication: HEPATITIS C
     Route: 048
     Dates: start: 20150921, end: 20151007
  9. VIEKIRAX [Suspect]
     Active Substance: OMBITASVIR\PARITAPREVIR\RITONAVIR
     Indication: HEPATITIS C
     Dosage: TABLET
     Route: 048
     Dates: start: 20150921, end: 20151007
  10. JANUVIA [Concomitant]
     Active Substance: SITAGLIPTIN PHOSPHATE

REACTIONS (10)
  - Dysarthria [Unknown]
  - Pneumonia aspiration [Unknown]
  - Malnutrition [Unknown]
  - Cerebrovascular accident [Fatal]
  - Hemiplegia [Unknown]
  - Bronchitis [Recovered/Resolved]
  - Cardiac failure [Recovered/Resolved]
  - Ischaemic stroke [Unknown]
  - Dehydration [Unknown]
  - Urinary retention [Unknown]

NARRATIVE: CASE EVENT DATE: 20151007
